FAERS Safety Report 10064384 (Version 1)
Quarter: 2014Q2

REPORT INFORMATION
  Report Type: Spontaneous
  Country: US (occurrence: US)
  Receive Date: 20140408
  Receipt Date: 20140408
  Transmission Date: 20141212
  Serious: No
  Sender: FDA-Public Use
  Company Number: US-BAYER-2014-051673

PATIENT
  Age: 34 Year
  Sex: Female

DRUGS (2)
  1. MIRENA [Suspect]
     Indication: CONTRACEPTION
     Dosage: 20 MCG/24HR, CONT
     Route: 015
     Dates: start: 20140317
  2. MIRENA [Suspect]
     Indication: CONTRACEPTION
     Dosage: UNK
     Dates: start: 20140317

REACTIONS (4)
  - Device issue [None]
  - Uterine spasm [None]
  - Complication of device insertion [None]
  - Device difficult to use [None]
